FAERS Safety Report 9169514 (Version 2)
Quarter: 2014Q1

REPORT INFORMATION
  Report Type: Report from Study
  Country: US (occurrence: US)
  Receive Date: 20130318
  Receipt Date: 20140205
  Transmission Date: 20141002
  Serious: Yes (Death, Disabling, Other)
  Sender: FDA-Public Use
  Company Number: US-ELI_LILLY_AND_COMPANY-US201303003034

PATIENT
  Sex: Female

DRUGS (2)
  1. SOMATROPIN [Suspect]
     Indication: GROWTH HORMONE DEFICIENCY
     Dosage: 0.7 MG, UNKNOWN
     Route: 065
     Dates: start: 201003
  2. SOMATROPIN [Suspect]
     Dosage: 0.2 MG, UNKNOWN
     Route: 065

REACTIONS (3)
  - Death [Fatal]
  - Amyotrophic lateral sclerosis [Unknown]
  - Peroneal nerve palsy [Unknown]
